FAERS Safety Report 4350342-3 (Version None)
Quarter: 2004Q2

REPORT INFORMATION
  Report Type: 
  Country: None (occurrence: None)
  Receive Date: 20040427
  Receipt Date: 20030911
  Transmission Date: 20050107
  Serious: No
  Sender: FDA-Public Use
  Company Number: 000643

PATIENT
  Age: 32 Year
  Sex: Male

DRUGS (8)
  1. ZEVALIN [Suspect]
     Indication: NON-HODGKIN'S LYMPHOMA
     Dosage: SEE IMAGE
     Dates: start: 20030901, end: 20030901
  2. ZEVALIN [Suspect]
     Indication: NON-HODGKIN'S LYMPHOMA
     Dosage: SEE IMAGE
     Dates: start: 20030901, end: 20030901
  3. ZEVALIN [Suspect]
     Indication: NON-HODGKIN'S LYMPHOMA
     Dosage: SEE IMAGE
     Dates: start: 20030909, end: 20030909
  4. ZEVALIN [Suspect]
     Indication: NON-HODGKIN'S LYMPHOMA
     Dosage: SEE IMAGE
     Dates: start: 20030909, end: 20030909
  5. ZEVALIN [Suspect]
  6. ZEVALIN [Suspect]
  7. .. [Suspect]
  8. .. [Suspect]

REACTIONS (2)
  - CONDITION AGGRAVATED [None]
  - COUGH [None]
